FAERS Safety Report 9478550 (Version 1)
Quarter: 2013Q3

REPORT INFORMATION
  Report Type: Spontaneous
  Country: GB (occurrence: GB)
  Receive Date: 20130827
  Receipt Date: 20130827
  Transmission Date: 20140515
  Serious: Yes (Other)
  Sender: FDA-Public Use
  Company Number: GB-ROXANE LABORATORIES, INC.-2013-RO-01404RO

PATIENT
  Age: 24 Year
  Sex: Male

DRUGS (6)
  1. MIDAZOLAM [Suspect]
     Indication: STATUS EPILEPTICUS
     Dosage: 10 MG
     Route: 002
  2. CARBAMAZEPINE [Concomitant]
     Indication: EPILEPSY
     Dosage: 500 MG
  3. ZONISAMIDE [Concomitant]
     Indication: EPILEPSY
     Dosage: 500 MG
  4. LAMOTRIGINE [Concomitant]
     Indication: EPILEPSY
     Dosage: 50 MG
  5. PHENYTOIN [Concomitant]
     Indication: EPILEPSY
     Dosage: 375 MG
  6. LACOSAMIDE [Concomitant]
     Indication: EPILEPSY
     Dosage: 500 MG

REACTIONS (1)
  - Hypotension [Recovered/Resolved]
